FAERS Safety Report 21586936 (Version 1)
Quarter: 2022Q4

REPORT INFORMATION
  Report Type: Spontaneous
  Country: US (occurrence: None)
  Receive Date: 20221110
  Receipt Date: 20221110
  Transmission Date: 20230112
  Serious: No
  Sender: FDA-Public Use
  Company Number: None

PATIENT
  Age: 70 Year
  Sex: Female
  Weight: 38.1 kg

DRUGS (1)
  1. FORTEO [Suspect]
     Active Substance: TERIPARATIDE
     Indication: Senile osteoporosis
     Dosage: OTHER STRENGTH : 600/2.4 UG/ML;?FREQUENCY : DAILY;?
     Route: 058
     Dates: start: 202210

REACTIONS (1)
  - Pneumonia [None]
